FAERS Safety Report 23694011 (Version 3)
Quarter: 2024Q3

REPORT INFORMATION
  Report Type: Spontaneous
  Country: US (occurrence: US)
  Receive Date: 20240401
  Receipt Date: 20240703
  Transmission Date: 20241016
  Serious: Yes (Hospitalization, Other)
  Sender: EISAI
  Company Number: US-Eisai-EC-2024-162850

PATIENT
  Age: 68 Year
  Sex: Female
  Weight: 107.4 kg

DRUGS (2)
  1. LEQEMBI [Suspect]
     Active Substance: LECANEMAB-IRMB
     Indication: Dementia Alzheimer^s type
     Dosage: DOSE UNKNOWN
     Route: 042
     Dates: start: 20240130
  2. LEQEMBI [Suspect]
     Active Substance: LECANEMAB-IRMB
     Dosage: DOSE UNKNOWN
     Route: 042
     Dates: start: 20240314, end: 20240314

REACTIONS (3)
  - Seizure [Recovered/Resolved]
  - Migraine [Recovering/Resolving]
  - Amyloid related imaging abnormality-oedema/effusion [Recovered/Resolved]

NARRATIVE: CASE EVENT DATE: 20240301
